FAERS Safety Report 5706967-3 (Version None)
Quarter: 2008Q2

REPORT INFORMATION
  Report Type: 
  Country: None (occurrence: None)
  Receive Date: 20080416
  Receipt Date: 20080414
  Transmission Date: 20081010
  Serious: Yes (Hospitalization)
  Sender: FDA-Public Use
  Company Number: US-BRISTOL-MYERS SQUIBB COMPANY-14149900

PATIENT
  Age: 50 Year
  Sex: Female

DRUGS (5)
  1. METFORMIN HCL [Suspect]
     Indication: TYPE 2 DIABETES MELLITUS
  2. CELECOXIB [Suspect]
     Indication: ARTHRALGIA
  3. CANDESARTAN CILEXETIL [Suspect]
     Indication: HYPERTENSION
  4. HYDROCHLOROTHIAZIDE [Suspect]
     Indication: HYPERTENSION
  5. ASPIRIN [Concomitant]

REACTIONS (3)
  - LACTIC ACIDOSIS [None]
  - PANCREATITIS ACUTE [None]
  - RENAL FAILURE ACUTE [None]
